FAERS Safety Report 4567013-0 (Version None)
Quarter: 2005Q1

REPORT INFORMATION
  Report Type: 
  Country: None (occurrence: None)
  Receive Date: 20050201
  Receipt Date: 20040428
  Transmission Date: 20050727
  Serious: Yes (Other)
  Sender: FDA-Public Use
  Company Number: US-BRISTOL-MYERS SQUIBB COMPANY-12576286

PATIENT
  Age: 41 Year
  Sex: Male

DRUGS (1)
  1. STADOL [Suspect]
     Route: 045
     Dates: start: 19910701, end: 20000901

REACTIONS (13)
  - AMNESIA [None]
  - ANXIETY [None]
  - CONFUSIONAL STATE [None]
  - COUGH [None]
  - DEPENDENCE [None]
  - DRUG WITHDRAWAL SYNDROME [None]
  - DYSPNOEA [None]
  - EAR PAIN [None]
  - HALLUCINATION [None]
  - HEART RATE IRREGULAR [None]
  - RESTLESSNESS [None]
  - TINNITUS [None]
  - VISION BLURRED [None]
